FAERS Safety Report 26187466 (Version 1)
Quarter: 2025Q4

REPORT INFORMATION
  Report Type: Spontaneous
  Country: US (occurrence: None)
  Receive Date: 20251222
  Receipt Date: 20251222
  Transmission Date: 20260118
  Serious: Yes (Hospitalization)
  Sender: FDA-CTU
  Company Number: None

PATIENT
  Sex: Female

DRUGS (1)
  1. TEZSPIRE [Suspect]
     Active Substance: TEZEPELUMAB-EKKO
     Indication: Asthma
     Dosage: INJECT 210 MG UNDER THE SKIN (SUBCUTANEOUS INJECTION) EVERY 28 DAYS
     Route: 058
     Dates: start: 20250207

REACTIONS (2)
  - Asthma [None]
  - Quality of life decreased [None]
